FAERS Safety Report 11329129 (Version 1)
Quarter: 2015Q3

REPORT INFORMATION
  Report Type: Report from Study
  Country: UA (occurrence: US)
  Receive Date: 20150803
  Receipt Date: 20150803
  Transmission Date: 20151125
  Serious: Yes (Other)
  Sender: FDA-Public Use
  Company Number: PHEH2015US014270

PATIENT
  Age: 4 Year
  Sex: Male

DRUGS (1)
  1. ILARIS [Suspect]
     Active Substance: CANAKINUMAB
     Indication: PRODUCT USED FOR UNKNOWN INDICATION
     Route: 065

REACTIONS (8)
  - Cough [Unknown]
  - Transaminases increased [Unknown]
  - Craniosynostosis [Unknown]
  - Splenomegaly [Unknown]
  - Skin lesion [Unknown]
  - Rhinorrhoea [Unknown]
  - Lymphadenopathy [Unknown]
  - Molluscum contagiosum [Unknown]
